FAERS Safety Report 24040116 (Version 2)
Quarter: 2024Q3

REPORT INFORMATION
  Report Type: Spontaneous
  Country: AU (occurrence: AU)
  Receive Date: 20240702
  Receipt Date: 20240829
  Transmission Date: 20241017
  Serious: Yes (Hospitalization)
  Sender: AMERICAN REGENT
  Company Number: AU-AMERICAN REGENT INC-2024002476

PATIENT
  Age: 15 Year
  Sex: Male

DRUGS (1)
  1. FERINJECT [Suspect]
     Active Substance: FERRIC CARBOXYMALTOSE
     Indication: Iron deficiency
     Dosage: 1000 MILLIGRAM IN 100 ML SALINE SOLUTION
     Dates: start: 202406, end: 202406

REACTIONS (11)
  - Viral infection [Unknown]
  - Lethargy [Recovered/Resolved]
  - Pain [Unknown]
  - Malaise [Unknown]
  - Asthenia [Unknown]
  - Headache [Recovered/Resolved]
  - Pyrexia [Recovered/Resolved]
  - Blood phosphorus decreased [Recovered/Resolved]
  - Back pain [Unknown]
  - Myalgia [Recovered/Resolved]
  - Incorrect drug administration rate [Unknown]

NARRATIVE: CASE EVENT DATE: 20240601
